FAERS Safety Report 8046509-3 (Version None)
Quarter: 2012Q1

REPORT INFORMATION
  Report Type: 
  Country: None (occurrence: None)
  Receive Date: 20120113
  Receipt Date: 20120106
  Transmission Date: 20120608
  Serious: Yes (Hospitalization, Other)
  Sender: FDA-Public Use
  Company Number: US-ABBOTT-12P-163-0891256-00

PATIENT
  Sex: Male

DRUGS (7)
  1. METOPROLOL TARTRATE [Concomitant]
     Indication: HYPERTENSION
  2. ABILIFY [Concomitant]
     Indication: MOOD ALTERED
  3. NORVASC [Concomitant]
     Indication: PRODUCT USED FOR UNKNOWN INDICATION
  4. PEPCID [Concomitant]
     Indication: GASTRIC DISORDER
  5. HUMIRA [Suspect]
     Indication: RHEUMATOID ARTHRITIS
     Dates: start: 20111026
  6. ZOLOFT [Concomitant]
     Indication: PRODUCT USED FOR UNKNOWN INDICATION
  7. NAMENDA [Concomitant]
     Indication: MEMORY IMPAIRMENT
     Dosage: QPM

REACTIONS (6)
  - HAEMATOCHEZIA [None]
  - LARGE INTESTINAL ULCER [None]
  - HEART RATE INCREASED [None]
  - PHARYNGEAL ULCERATION [None]
  - DIVERTICULITIS [None]
  - MOBILITY DECREASED [None]
